FAERS Safety Report 4379616-7 (Version None)
Quarter: 2004Q2

REPORT INFORMATION
  Report Type: 
  Country: None (occurrence: None)
  Receive Date: 20040614
  Receipt Date: 20040602
  Transmission Date: 20050107
  Serious: Yes (Other)
  Sender: FDA-Public Use
  Company Number: NL-JNJFOC-20040600830

PATIENT
  Age: 31 Year
  Sex: Female

DRUGS (2)
  1. REMICADE [Suspect]
     Indication: RHEUMATOID ARTHRITIS
     Dosage: 10 MG/KG, INTRAVENOUS
     Route: 042
     Dates: start: 20010701, end: 20020301
  2. SULFASALAZINE [Concomitant]

REACTIONS (2)
  - DRUG INEFFECTIVE [None]
  - VISUAL ACUITY REDUCED [None]
